FAERS Safety Report 5159336-1 (Version None)
Quarter: 2006Q4

REPORT INFORMATION
  Report Type: 
  Country: None (occurrence: None)
  Receive Date: 20061120
  Receipt Date: 20061103
  Transmission Date: 20070319
  Serious: Yes (Hospitalization)
  Sender: FDA-Public Use
  Company Number: DSA_28946_2006

PATIENT
  Age: 80 Year
  Sex: Female

DRUGS (3)
  1. LORAZEPAM [Suspect]
     Dosage: 1 MG ONCE PO
     Route: 048
     Dates: start: 20060817, end: 20060817
  2. CELESTONE SOLUSPAN [Suspect]
     Indication: NERVE BLOCK
     Dosage: 18 MG ONCE EPIDURAL
     Route: 008
     Dates: start: 20060817, end: 20060817
  3. LIDOCAINE 1% [Suspect]
     Indication: NERVE BLOCK
     Dosage: 2 CC ONCE EPIDURAL
     Route: 008
     Dates: start: 20060817, end: 20060817

REACTIONS (3)
  - HYPOAESTHESIA [None]
  - PARALYSIS FLACCID [None]
  - PARAPARESIS [None]
